FAERS Safety Report 17166622 (Version 3)
Quarter: 2020Q1

REPORT INFORMATION
  Report Type: Spontaneous
  Country: DE (occurrence: DE)
  Receive Date: 20191217
  Receipt Date: 20200311
  Transmission Date: 20200409
  Serious: Yes (Hospitalization, Other)
  Sender: FDA-Public Use
  Company Number: DE-GILEAD-2019-0442241

PATIENT
  Age: 86 Year
  Sex: Male
  Weight: 99 kg

DRUGS (3)
  1. ENTECAVIR. [Concomitant]
     Active Substance: ENTECAVIR
  2. TENOFOVIR DISOPROXIL FUMARATE. [Suspect]
     Active Substance: TENOFOVIR DISOPROXIL FUMARATE
     Indication: HEPATITIS B
     Dosage: 245 MG
     Route: 048
     Dates: start: 20190905
  3. VEMLIDY [Concomitant]
     Active Substance: TENOFOVIR ALAFENAMIDE FUMARATE
     Indication: RENAL FAILURE
     Dosage: 25 MG, QD
     Route: 048
     Dates: start: 20191120, end: 20191203

REACTIONS (2)
  - Drug-induced liver injury [Recovered/Resolved]
  - Transaminases increased [Recovered/Resolved]

NARRATIVE: CASE EVENT DATE: 2019
